FAERS Safety Report 14684697 (Version 4)
Quarter: 2018Q2

REPORT INFORMATION
  Report Type: Spontaneous
  Country: DE (occurrence: DE)
  Receive Date: 20180327
  Receipt Date: 20180529
  Transmission Date: 20180711
  Serious: Yes (Other)
  Sender: FDA-Public Use
  Company Number: DE-ACTELION-A-CH2018-169461

PATIENT
  Age: 68 Year
  Sex: Male

DRUGS (12)
  1. OPSUMIT [Suspect]
     Active Substance: MACITENTAN
     Indication: PULMONARY ARTERIAL HYPERTENSION
     Dosage: 10 MG, QD
     Route: 048
     Dates: start: 20150901, end: 201712
  2. BLEOMYCIN [Concomitant]
     Active Substance: BLEOMYCIN SULFATE
  3. OXYGEN. [Concomitant]
     Active Substance: OXYGEN
  4. MARCOUMAR [Concomitant]
     Active Substance: PHENPROCOUMON
  5. XIPAMIDE [Concomitant]
     Active Substance: XIPAMIDE
     Dosage: 10 MG, OD
  6. VENTAVIS [Suspect]
     Active Substance: ILOPROST
     Indication: PULMONARY ARTERIAL HYPERTENSION
     Dosage: 6 PUFF, QD
     Route: 055
     Dates: start: 201602, end: 20170319
  7. VENTAVIS [Suspect]
     Active Substance: ILOPROST
     Dosage: 6 PUFF, QD
     Route: 055
     Dates: start: 2017
  8. REVATIO [Concomitant]
     Active Substance: SILDENAFIL CITRATE
  9. PREGABALIN. [Concomitant]
     Active Substance: PREGABALIN
     Dosage: 25 MG, OD
  10. CLEXANE [Concomitant]
     Active Substance: ENOXAPARIN SODIUM
  11. LASIX [Concomitant]
     Active Substance: FUROSEMIDE
  12. TORASEMIDE [Concomitant]
     Active Substance: TORSEMIDE
     Dosage: 50 MG, OD

REACTIONS (10)
  - Drug ineffective [Unknown]
  - Arrhythmia [Unknown]
  - Syncope [Unknown]
  - Asthenia [Unknown]
  - Renal disorder [Unknown]
  - General physical condition abnormal [Unknown]
  - Left ventricular failure [Unknown]
  - Oedema [Unknown]
  - Renal failure [Unknown]
  - Renal atrophy [Unknown]

NARRATIVE: CASE EVENT DATE: 2016
